FAERS Safety Report 6741606-4 (Version None)
Quarter: 2010Q2

REPORT INFORMATION
  Report Type: 
  Country: None (occurrence: None)
  Receive Date: 20100524
  Receipt Date: 20100507
  Transmission Date: 20101027
  Serious: Yes (Hospitalization)
  Sender: FDA-Public Use
  Company Number: AUR-APL-2010-01290

PATIENT
  Age: 54 Year
  Sex: Male

DRUGS (21)
  1. METFORMIN HCL [Suspect]
     Indication: DIABETES MELLITUS
     Dosage: ORAL
     Route: 048
     Dates: start: 20090420, end: 20090601
  2. UNACID FILM-COATED TABLET [Suspect]
     Indication: INFECTION
     Dosage: 1.5 MG, TID, ORAL
     Route: 048
     Dates: start: 20090602, end: 20090605
  3. UNACID FILM-COATED TABLET [Suspect]
     Indication: SKIN ULCER
     Dosage: 1.5 MG, TID, ORAL
     Route: 048
     Dates: start: 20090602, end: 20090605
  4. UNACID FILM-COATED TABLET [Suspect]
     Indication: INFECTION
     Dosage: 1.5 MG, TID, ORAL
     Route: 048
     Dates: start: 20090609, end: 20090610
  5. UNACID FILM-COATED TABLET [Suspect]
     Indication: SKIN ULCER
     Dosage: 1.5 MG, TID, ORAL
     Route: 048
     Dates: start: 20090609, end: 20090610
  6. IBUPROFEN [Suspect]
     Indication: PAIN
     Dosage: 600MG, BID, ORAL
     Route: 048
     Dates: start: 20090423, end: 20090501
  7. MAGNESIUM [Suspect]
     Indication: MUSCLE SPASMS
     Dosage: ORAL
     Route: 048
     Dates: start: 20090101, end: 20090601
  8. APIDRA [Suspect]
     Indication: DIABETES MELLITUS
     Dosage: , SC
     Route: 058
     Dates: start: 20090430
  9. TRAMAGIT [Suspect]
     Indication: PAIN
     Dosage: 100MG
     Dates: start: 20090528, end: 20090601
  10. TAXOFIT [Suspect]
     Dosage: , ORAL
     Route: 048
     Dates: start: 20090528, end: 20090601
  11. DIPIDOLOR [Suspect]
     Indication: PAIN
     Dosage: 5MG, IV
     Route: 042
     Dates: start: 20090609, end: 20090609
  12. CLONIDINE [Suspect]
     Indication: PAIN
     Dosage: 75UG, BID, IV
     Route: 042
     Dates: start: 20090609, end: 20090609
  13. MIDAZOLAM HCL [Suspect]
     Indication: SEDATION
     Dosage: 7.5MG, DAILY, ORAL
     Route: 048
     Dates: start: 20090609, end: 20090609
  14. MEPIVACAINE HCL [Suspect]
     Indication: LOCAL ANAESTHESIA
     Dosage: , SC
     Route: 058
     Dates: start: 20090609, end: 20090609
  15. NAROPIN [Suspect]
     Indication: ANALGESIC THERAPY
     Dates: start: 20090609, end: 20090609
  16. PROPOFOL [Suspect]
     Indication: GENERAL ANAESTHESIA
     Dosage: , IV
     Route: 042
     Dates: start: 20090609, end: 20090609
  17. HEPARIN [Suspect]
     Indication: THROMBOSIS PROPHYLAXIS
     Dosage: 5000IU, IV
     Route: 042
     Dates: start: 20090609, end: 20090610
  18. NOVAGIN [Suspect]
     Indication: PAIN
     Dosage: 1G, TID, IV
     Dates: start: 20090609
  19. CARBOSTESIN 'ASTRA' [Suspect]
     Indication: ANALGESIC THERAPY
     Dosage: 0.25%
     Dates: start: 20090609
  20. SUFENTANIL CITRATE [Suspect]
     Indication: ANALGESIC THERAPY
     Dates: start: 20090609
  21. CIPROFLOXACIN [Concomitant]

REACTIONS (10)
  - BLISTER [None]
  - DYSPHAGIA [None]
  - INFECTION [None]
  - LIP EROSION [None]
  - OROPHARYNGEAL PAIN [None]
  - PRURITUS [None]
  - PYREXIA [None]
  - RASH [None]
  - STEVENS-JOHNSON SYNDROME [None]
  - VASCULAR GRAFT [None]
